FAERS Safety Report 7360205-7 (Version None)
Quarter: 2011Q1

REPORT INFORMATION
  Report Type: 
  Country: None (occurrence: None)
  Receive Date: 20110307
  Receipt Date: 20101026
  Transmission Date: 20110831
  Serious: Yes (Other)
  Sender: FDA-Public Use
  Company Number: CH-GDP-10410092

PATIENT
  Sex: Male
  Weight: 64 kg

DRUGS (2)
  1. EPIDUO [Suspect]
     Indication: ACNE
     Dosage: TOPICAL
     Route: 061
  2. SALICYLIC ACID PEELING (SALICYLIC ACID PREPARATIONS) [Suspect]
     Dosage: TOPICAL
     Route: 061
     Dates: start: 20101001, end: 20101001

REACTIONS (7)
  - SKIN REACTION [None]
  - PAIN [None]
  - OEDEMA [None]
  - SKIN BURNING SENSATION [None]
  - DRUG INTERACTION [None]
  - ERYTHEMA [None]
  - PRURITUS [None]
